FAERS Safety Report 4874203-6 (Version None)
Quarter: 2006Q1

REPORT INFORMATION
  Report Type: 
  Country: None (occurrence: None)
  Receive Date: 20060104
  Receipt Date: 20060104
  Transmission Date: 20060701
  Serious: Yes (Life-Threatening)
  Sender: FDA-Public Use
  Company Number: None

PATIENT
  Age: 19 Year
  Sex: Male
  Weight: 115 kg

DRUGS (1)
  1. SEROQUEL [Suspect]
     Dosage: 58 TABS X 1

REACTIONS (1)
  - OVERDOSE [None]
